FAERS Safety Report 10866977 (Version 2)
Quarter: 2015Q1

REPORT INFORMATION
  Report Type: Spontaneous
  Country: US (occurrence: US)
  Receive Date: 20150225
  Receipt Date: 20150316
  Transmission Date: 20150721
  Serious: No
  Sender: FDA-Public Use
  Company Number: US-PFIZER INC-2015067001

PATIENT
  Age: 66 Year
  Sex: Female

DRUGS (2)
  1. FLONASE [Suspect]
     Active Substance: FLUTICASONE PROPIONATE
     Dosage: UNK
  2. XELJANZ [Suspect]
     Active Substance: TOFACITINIB CITRATE
     Indication: RHEUMATOID ARTHRITIS
     Dosage: 5 MG, TWICE DAILY
     Route: 048
     Dates: start: 201412

REACTIONS (7)
  - Increased upper airway secretion [Unknown]
  - Fatigue [Unknown]
  - Rhinorrhoea [Unknown]
  - Throat irritation [Unknown]
  - Cough [Unknown]
  - Glossitis [Unknown]
  - Respiratory disorder [Unknown]
